FAERS Safety Report 10063675 (Version 1)
Quarter: 2014Q2

REPORT INFORMATION
  Report Type: Spontaneous
  Country: US (occurrence: US)
  Receive Date: 20140407
  Receipt Date: 20140407
  Transmission Date: 20141212
  Serious: Yes (Hospitalization)
  Sender: FDA-Public Use
  Company Number: PHEH2014US006632

PATIENT
  Sex: Female

DRUGS (3)
  1. LOTREL [Suspect]
     Indication: BLOOD PRESSURE INCREASED
     Dosage: UNK UKN, UNK
  2. FLUOXETINE [Concomitant]
     Dosage: UNK UKN, UNK
  3. BUPROPION [Concomitant]
     Dosage: UNK UKN, UNK

REACTIONS (3)
  - Balance disorder [Unknown]
  - Speech disorder [Unknown]
  - Dizziness [Unknown]
